FAERS Safety Report 5003933-0 (Version None)
Quarter: 2006Q2

REPORT INFORMATION
  Report Type: 
  Country: None (occurrence: None)
  Receive Date: 20060517
  Receipt Date: 20060302
  Transmission Date: 20061013
  Serious: Yes (Other)
  Sender: FDA-Public Use
  Company Number: PHNU2006DE01204

PATIENT
  Sex: Male

DRUGS (7)
  1. TEGRETOL [Suspect]
     Dosage: 200MG /DAY
     Route: 048
  2. TEGRETOL [Suspect]
     Dosage: 200MG /DAY
     Route: 048
  3. TEGRETOL [Suspect]
     Dosage: 200MG /DAY
     Route: 048
  4. TEGRETOL [Suspect]
     Dosage: 200MG /DAY
  5. TEGRETOL [Suspect]
     Dosage: 200MG /DAY
     Route: 048
  6. TEGRETOL [Suspect]
     Dosage: 200MG /DAY
     Route: 048
  7. TEGRETOL [Suspect]
     Route: 048

REACTIONS (10)
  - ABDOMINAL PAIN [None]
  - ASTHENIA [None]
  - DIZZINESS [None]
  - DRUG INEFFECTIVE [None]
  - DRUG INTOLERANCE [None]
  - DRY MOUTH [None]
  - DYSPEPSIA [None]
  - PARALYSIS [None]
  - SEDATION [None]
  - TACHYCARDIA [None]
